FAERS Safety Report 8372453-8 (Version None)
Quarter: 2012Q2

REPORT INFORMATION
  Report Type: 
  Country: None (occurrence: None)
  Receive Date: 20120521
  Receipt Date: 20120515
  Transmission Date: 20120825
  Serious: No
  Sender: FDA-Public Use
  Company Number: US-PFIZER INC-2012118680

PATIENT
  Sex: Female
  Weight: 44.9 kg

DRUGS (3)
  1. OGEN [Suspect]
     Indication: OESTROGEN REPLACEMENT THERAPY
     Dosage: UNK
  2. SPIRIVA [Concomitant]
     Indication: CHRONIC OBSTRUCTIVE PULMONARY DISEASE
     Dosage: 625 MG, AS NEEDED
  3. THYROID TAB [Concomitant]
     Indication: THYROID DISORDER
     Dosage: 15 MG, 1X/DAY

REACTIONS (1)
  - MALAISE [None]
